FAERS Safety Report 9883730 (Version 1)
Quarter: 2014Q1

REPORT INFORMATION
  Report Type: Spontaneous
  Country: US (occurrence: US)
  Receive Date: 20140210
  Receipt Date: 20140210
  Transmission Date: 20141002
  Serious: No
  Sender: FDA-Public Use
  Company Number: US-009507513-1402USA002296

PATIENT
  Age: 46 Year
  Sex: Male

DRUGS (3)
  1. PROVENTIL [Suspect]
     Indication: ASTHMA
     Route: 055
  2. SOLU-MEDROL [Concomitant]
     Route: 042
  3. MAGNESIUM SULFATE [Concomitant]
     Route: 042

REACTIONS (1)
  - Lactic acidosis [Recovered/Resolved]
